FAERS Safety Report 24944453 (Version 2)
Quarter: 2025Q1

REPORT INFORMATION
  Report Type: Report from Study
  Country: US (occurrence: US)
  Receive Date: 20250208
  Receipt Date: 20250217
  Transmission Date: 20250409
  Serious: Yes (Other)
  Sender: ROCHE
  Company Number: US-ROCHE-10000134897

PATIENT
  Age: 15 Year
  Sex: Male
  Weight: 77.11 kg

DRUGS (6)
  1. XOLAIR [Suspect]
     Active Substance: OMALIZUMAB
     Indication: Mast cell activation syndrome
     Dosage: STRENGTH: 75 MG/0.5 ML, QUANTITY: 150 MG.?INJECT 2 SYRINGES UNDER THE SKIN EVERY 4 WEEKS.?DATES OF T
     Route: 058
  2. XOLAIR [Suspect]
     Active Substance: OMALIZUMAB
  3. ZYRTEC [Concomitant]
     Active Substance: CETIRIZINE HYDROCHLORIDE
     Indication: Mast cell activation syndrome
     Dosage: TAKES IN THE MORNING AND AT NIGHT.
     Route: 048
     Dates: start: 2019
  4. CROMOLYN SODIUM [Concomitant]
     Active Substance: CROMOLYN SODIUM
     Indication: Mast cell activation syndrome
     Dosage: THIS IS A LIQUID THAT IS PLACED INTO WATER.
     Route: 048
     Dates: start: 2019
  5. CROMOLYN SODIUM [Concomitant]
     Active Substance: CROMOLYN SODIUM
     Indication: Diarrhoea
  6. CROMOLYN SODIUM [Concomitant]
     Active Substance: CROMOLYN SODIUM
     Indication: Vomiting

REACTIONS (2)
  - Off label use [Unknown]
  - Anaphylactic reaction [Unknown]
